FAERS Safety Report 7227426-5 (Version None)
Quarter: 2011Q1

REPORT INFORMATION
  Report Type: 
  Country: None (occurrence: None)
  Receive Date: 20110105
  Receipt Date: 20101222
  Transmission Date: 20110831
  Serious: Yes (Other)
  Sender: FDA-Public Use
  Company Number: GER/UKI/10/0016981

PATIENT
  Age: 45 Year
  Sex: Male

DRUGS (4)
  1. MYCOPHENOLATE MOFETIL [Suspect]
     Indication: LUNG TRANSPLANT
  2. CYCLOSPORINE [Suspect]
     Indication: LUNG TRANSPLANT
  3. PREDNISOLONE [Suspect]
     Indication: LUNG TRANSPLANT
  4. TACROLIMUS [Suspect]
     Indication: LUNG TRANSPLANT

REACTIONS (5)
  - FUNGAL INFECTION [None]
  - INFLAMMATION [None]
  - GRANULOMA [None]
  - RENAL FAILURE [None]
  - DIALYSIS [None]
